FAERS Safety Report 8927527 (Version 1)
Quarter: 2012Q4

REPORT INFORMATION
  Report Type: 
  Country: CA (occurrence: CA)
  Receive Date: 20121127
  Receipt Date: 20121127
  Transmission Date: 20130627
  Serious: Yes (Other)
  Sender: FDA-Public Use
  Company Number: CA-NAPPMUNDI-CAN-2012-0003518

PATIENT
  Age: 30 Year
  Sex: Female

DRUGS (15)
  1. OXYNEO [Suspect]
     Indication: PAIN
     Dosage: 10 mg, prn
     Route: 048
     Dates: start: 201208
  2. OXYNEO [Suspect]
     Indication: PELVIC PAIN
  3. LUPRON [Concomitant]
     Indication: ENDOMETRIOSIS
     Dosage: UNK
     Dates: start: 201208
  4. TYLENOL WITH CODEIN #4 [Concomitant]
     Indication: PAIN
     Dosage: 6-8 tablet, daily prn
     Route: 048
  5. TYLENOL WITH CODEIN #4 [Concomitant]
     Indication: PELVIC PAIN
  6. NAPROXEN [Concomitant]
     Indication: PAIN
     Dosage: 250 mg, daily prn
     Route: 048
  7. NAPROXEN [Concomitant]
     Indication: PELVIC PAIN
  8. SUPEUDOL [Concomitant]
     Indication: PAIN
     Dosage: 10 mg, daily prn
     Route: 048
  9. SUPEUDOL [Concomitant]
     Indication: PELVIC PAIN
  10. PERCOCET                           /00867901/ [Concomitant]
     Indication: PAIN
     Dosage: 5 mg, daily prn
     Route: 048
  11. PERCOCET                           /00867901/ [Concomitant]
     Indication: PELVIC PAIN
  12. DOXYCYCLINE [Concomitant]
     Indication: ACNE
     Dosage: 200 mg, daily
  13. EFFEXOR [Concomitant]
     Indication: DEPRESSION
     Dosage: 225 mg, daily
     Dates: start: 201206
  14. EFFEXOR [Concomitant]
     Indication: POST-TRAUMATIC STRESS DISORDER
  15. SEROQUEL [Concomitant]
     Indication: INSOMNIA
     Dosage: 50 mg, daily
     Route: 048
     Dates: start: 201208

REACTIONS (4)
  - Burn oesophageal [Not Recovered/Not Resolved]
  - Oesophageal oedema [Not Recovered/Not Resolved]
  - Oesophageal pain [Not Recovered/Not Resolved]
  - Foreign body [Recovered/Resolved]
